FAERS Safety Report 21064357 (Version 1)
Quarter: 2022Q3

REPORT INFORMATION
  Report Type: Report from Study
  Country: CN (occurrence: CN)
  Receive Date: 20220711
  Receipt Date: 20220711
  Transmission Date: 20221027
  Serious: Yes (Life-Threatening, Other)
  Sender: FDA-Public Use
  Company Number: CN-PFIZER INC-202200910598

PATIENT
  Age: 43 Year
  Sex: Male

DRUGS (6)
  1. CYTARABINE [Suspect]
     Active Substance: CYTARABINE
     Indication: Acute promyelocytic leukaemia
     Dosage: Q12H, ON DAY 1-7
     Dates: start: 20201128
  2. ACLARUBICIN [Suspect]
     Active Substance: ACLARUBICIN
     Indication: Acute promyelocytic leukaemia
     Dosage: ON DAY 1-4
     Dates: start: 20201128
  3. VENETOCLAX [Suspect]
     Active Substance: VENETOCLAX
     Indication: Acute promyelocytic leukaemia
     Dosage: ON DAY 1
     Dates: start: 20201128
  4. VENETOCLAX [Suspect]
     Active Substance: VENETOCLAX
     Dosage: ON DAY 2
  5. VENETOCLAX [Suspect]
     Active Substance: VENETOCLAX
     Dosage: ON DAY 3-28
  6. GRANULOCYTE COLONY-STIMULATING FACTOR NOS [Suspect]
     Active Substance: GRANULOCYTE COLONY-STIMULATING FACTOR NOS
     Indication: Acute promyelocytic leukaemia
     Dosage: ON DAY 1-7
     Dates: start: 20201128

REACTIONS (3)
  - Neutropenia [Unknown]
  - Thrombocytopenia [Unknown]
  - Anaemia [Unknown]
